FAERS Safety Report 5909340-8 (Version None)
Quarter: 2008Q4

REPORT INFORMATION
  Report Type: 
  Country: None (occurrence: None)
  Receive Date: 20081006
  Receipt Date: 20081003
  Transmission Date: 20090506
  Serious: Yes (Other)
  Sender: FDA-Public Use
  Company Number: JP-ASTRAZENECA-2008AP07669

PATIENT
  Age: 54 Year
  Sex: Male

DRUGS (1)
  1. IRESSA TABLETS 250 [Suspect]
     Indication: LUNG NEOPLASM MALIGNANT
     Route: 048

REACTIONS (1)
  - CYSTITIS HAEMORRHAGIC [None]
